FAERS Safety Report 19211005 (Version 1)
Quarter: 2021Q2

REPORT INFORMATION
  Report Type: Spontaneous
  Country: AU (occurrence: AU)
  Receive Date: 20210501
  Receipt Date: 20210501
  Transmission Date: 20210717
  Serious: Yes (Hospitalization)
  Sender: FDA-Public Use
  Company Number: AU-ALVOGEN-2021-ALVOGEN-116937

PATIENT
  Age: 50 Year
  Sex: Male

DRUGS (8)
  1. METHOTREXATE. [Suspect]
     Active Substance: METHOTREXATE
     Indication: PASH SYNDROME
  2. ANAKINRA [Suspect]
     Active Substance: ANAKINRA
     Indication: PASH SYNDROME
  3. ERTAPENEM. [Suspect]
     Active Substance: ERTAPENEM SODIUM
     Indication: PASH SYNDROME
  4. PREDNISOLONE. [Suspect]
     Active Substance: PREDNISOLONE
     Indication: PASH SYNDROME
     Route: 048
  5. CLINDAMYCIN. [Suspect]
     Active Substance: CLINDAMYCIN
     Indication: PASH SYNDROME
  6. VANCOMYCIN [Suspect]
     Active Substance: VANCOMYCIN
     Indication: PASH SYNDROME
  7. ISOTRETINOIN. [Suspect]
     Active Substance: ISOTRETINOIN
     Indication: PASH SYNDROME
  8. INFLIXIMAB HOSPIRA [Suspect]
     Active Substance: INFLIXIMAB
     Indication: PASH SYNDROME

REACTIONS (2)
  - Drug ineffective for unapproved indication [Unknown]
  - Off label use [Unknown]
